FAERS Safety Report 8212434-8 (Version None)
Quarter: 2012Q1

REPORT INFORMATION
  Report Type: 
  Country: None (occurrence: None)
  Receive Date: 20120315
  Receipt Date: 20120313
  Transmission Date: 20120608
  Serious: Yes (Hospitalization, Other)
  Sender: FDA-Public Use
  Company Number: US-BAYER-201019188NA

PATIENT
  Age: 42 Year
  Sex: Female
  Weight: 74.83 kg

DRUGS (8)
  1. YAZ [Suspect]
     Indication: PRODUCT USED FOR UNKNOWN INDICATION
     Dosage: UNK
     Dates: end: 20050101
  2. NAPROSYN [Concomitant]
     Indication: MUSCULOSKELETAL DISCOMFORT
  3. YASMIN [Suspect]
     Indication: PRODUCT USED FOR UNKNOWN INDICATION
     Dosage: 14-OCT-2003: YASMIN SAMPLES FOR THREE MONTHS WERE PROVIDED.
     Route: 048
     Dates: start: 20050201, end: 20050401
  4. ANTIBIOTICS [Concomitant]
     Dosage: IV FLUID.
     Route: 042
  5. OXYGEN [Concomitant]
  6. LASIX [Concomitant]
  7. HEPARIN [Concomitant]
  8. ANALGESICS [Concomitant]
     Dosage: IV FLUID
     Route: 042

REACTIONS (15)
  - ABDOMINAL PAIN UPPER [None]
  - ABDOMINAL PAIN [None]
  - DYSPNOEA [None]
  - CHOLELITHIASIS [None]
  - OEDEMA PERIPHERAL [None]
  - PAINFUL RESPIRATION [None]
  - MUSCLE TIGHTNESS [None]
  - PAIN IN EXTREMITY [None]
  - VOMITING [None]
  - OXYGEN SATURATION DECREASED [None]
  - DEEP VEIN THROMBOSIS [None]
  - PULMONARY EMBOLISM [None]
  - NAUSEA [None]
  - CHOLECYSTITIS ACUTE [None]
  - MIGRAINE [None]
